FAERS Safety Report 7219415-1 (Version None)
Quarter: 2011Q1

REPORT INFORMATION
  Report Type: 
  Country: None (occurrence: None)
  Receive Date: 20110111
  Receipt Date: 20110107
  Transmission Date: 20110831
  Serious: Yes (Hospitalization)
  Sender: FDA-Public Use
  Company Number: FR-EISAI INC.-E2090-01407-SPO-FR

PATIENT
  Age: 30 Year
  Sex: Male

DRUGS (7)
  1. ZONEGRAN [Suspect]
     Dosage: UNKNOWN
     Route: 048
     Dates: start: 20100721, end: 20100727
  2. PHENOBARBITAL [Concomitant]
     Dosage: 100 MG DAILY
     Route: 048
  3. ZONEGRAN [Suspect]
     Dosage: UNKNOWN
     Route: 048
  4. ZONEGRAN [Suspect]
     Indication: EPILEPSY
     Dosage: 350 MG DAILY
     Route: 048
     Dates: end: 20100720
  5. LEVETIRACETAM [Concomitant]
     Dosage: 2 G DAILY
     Route: 048
  6. CLONAZEPAM [Concomitant]
     Dosage: 1 MG DAILY
     Route: 048
  7. VALPROIC ACID [Concomitant]
     Dosage: 3 G DAILY
     Route: 048

REACTIONS (1)
  - NEUTROPENIA [None]
